FAERS Safety Report 9508134 (Version 1)
Quarter: 2013Q3

REPORT INFORMATION
  Report Type: Spontaneous
  Country: US (occurrence: US)
  Receive Date: 20130909
  Receipt Date: 20130909
  Transmission Date: 20140515
  Serious: No
  Sender: FDA-Public Use
  Company Number: US-PFIZER INC-2013255751

PATIENT
  Age: 80 Year
  Sex: Female
  Weight: 61.22 kg

DRUGS (9)
  1. AMPICILLIN [Suspect]
     Dosage: UNK
  2. ERYTHROMYCIN [Suspect]
     Dosage: UNK
  3. TETRACYCLINE HCL [Suspect]
     Dosage: UNK
  4. NAPROXEN SODIUM [Suspect]
     Dosage: UNK
  5. OMEPRAZOLE [Suspect]
     Dosage: UNK
  6. METOPROLOL TARTRATE [Suspect]
     Dosage: UNK
  7. FAMOTIDINE [Suspect]
     Dosage: UNK
  8. LANSOPRAZOLE [Suspect]
     Dosage: UNK
  9. NITROFURANTOIN [Suspect]
     Dosage: UNK

REACTIONS (1)
  - Drug hypersensitivity [Unknown]
